FAERS Safety Report 4327528-7 (Version None)
Quarter: 2004Q1

REPORT INFORMATION
  Report Type: 
  Country: None (occurrence: None)
  Receive Date: 20040325
  Receipt Date: 20040312
  Transmission Date: 20041129
  Serious: Yes (Hospitalization)
  Sender: FDA-Public Use
  Company Number: 2004UW05086

PATIENT
  Age: 30 Year
  Sex: Male
  Weight: 70 kg

DRUGS (3)
  1. XYLOCAINE [Suspect]
     Indication: TOOTHACHE
     Dates: start: 20040305, end: 20040305
  2. XYLOCAINE [Suspect]
     Indication: TOOTHACHE
     Dates: start: 20040312
  3. ANOBESE [Concomitant]

REACTIONS (2)
  - ERYTHEMA [None]
  - PYREXIA [None]
